FAERS Safety Report 9252364 (Version 2)
Quarter: 2013Q3

REPORT INFORMATION
  Report Type: Spontaneous
  Country: US (occurrence: US)
  Receive Date: 20130424
  Receipt Date: 20130924
  Transmission Date: 20140515
  Serious: No
  Sender: FDA-Public Use
  Company Number: US-009507513-1304USA004143

PATIENT
  Age: 92 Year
  Sex: Male

DRUGS (2)
  1. JANUVIA [Suspect]
     Indication: TYPE 2 DIABETES MELLITUS
     Dosage: UNK, QAM
     Route: 048
     Dates: start: 201204, end: 20130320
  2. JANUVIA [Suspect]
     Dosage: UNK, QAM
     Route: 048
     Dates: start: 20130405

REACTIONS (3)
  - Dizziness [Unknown]
  - Asthenia [Unknown]
  - Drug dose omission [Unknown]
